FAERS Safety Report 7985274-2 (Version None)
Quarter: 2011Q4

REPORT INFORMATION
  Report Type: 
  Country: None (occurrence: None)
  Receive Date: 20111216
  Receipt Date: 20111208
  Transmission Date: 20120403
  Serious: Yes (Hospitalization)
  Sender: FDA-Public Use
  Company Number: US-UCBSA-047480

PATIENT
  Age: 63 Year
  Sex: Male
  Weight: 88.9 kg

DRUGS (5)
  1. PREDNISONE TAB [Concomitant]
     Indication: CROHN'S DISEASE
     Dates: start: 20030127, end: 20030601
  2. CIMZIA [Suspect]
     Indication: CROHN'S DISEASE
     Route: 058
     Dates: start: 20100429
  3. FLAGYL [Concomitant]
     Indication: CROHN'S DISEASE
     Dates: start: 20100331
  4. IBUPROFEN [Concomitant]
     Indication: CROHN'S DISEASE
  5. PREDNISONE TAB [Concomitant]
     Dosage: 10 MG. TAPERING DOSE.
     Dates: start: 20110809, end: 20111001

REACTIONS (2)
  - FISTULA [None]
  - ANAL ABSCESS [None]
